FAERS Safety Report 21355760 (Version 1)
Quarter: 2022Q3

REPORT INFORMATION
  Report Type: Spontaneous
  Country: US (occurrence: US)
  Receive Date: 20220920
  Receipt Date: 20220920
  Transmission Date: 20221027
  Serious: No
  Sender: FDA-Public Use
  Company Number: US-THERAPEUTICSMD-2021TMD02373

PATIENT
  Sex: Female
  Weight: 88.435 kg

DRUGS (2)
  1. ANNOVERA [Suspect]
     Active Substance: ETHINYL ESTRADIOL\SEGESTERONE ACETATE
     Indication: Contraception
     Dosage: 1 RING, CONTINUOUSLY, KEEP IN FOR 13 MONTHS
     Route: 067
     Dates: start: 20210729, end: 20210807
  2. ANNOVERA [Suspect]
     Active Substance: ETHINYL ESTRADIOL\SEGESTERONE ACETATE
     Indication: Endometriosis

REACTIONS (4)
  - Vulvovaginal discomfort [Recovered/Resolved]
  - Vulvovaginal pain [Recovered/Resolved]
  - Device difficult to use [Recovered/Resolved]
  - Device dislocation [Recovered/Resolved]

NARRATIVE: CASE EVENT DATE: 20210101
